FAERS Safety Report 5033078-5 (Version None)
Quarter: 2006Q2

REPORT INFORMATION
  Report Type: 
  Country: None (occurrence: None)
  Receive Date: 20060620
  Receipt Date: 20060601
  Transmission Date: 20061013
  Serious: Yes (Other)
  Sender: FDA-Public Use
  Company Number: US200606001004

PATIENT
  Age: 35 Year
  Sex: Male

DRUGS (3)
  1. CYMBALTA [Suspect]
     Indication: NEUROPATHY
     Dosage: 60 MG,
     Dates: start: 20051201
  2. PREGABALIN (PREGABALIN) [Concomitant]
  3. EFFEXOR [Concomitant]

REACTIONS (10)
  - BLOOD PRESSURE INCREASED [None]
  - DIAPHRAGMATIC PARALYSIS [None]
  - DYSPHAGIA [None]
  - ERYTHEMA [None]
  - HEART RATE INCREASED [None]
  - HOT FLUSH [None]
  - HYPERHIDROSIS [None]
  - NEUROPATHY [None]
  - PAIN IN EXTREMITY [None]
  - PYREXIA [None]
